FAERS Safety Report 7158288-2 (Version None)
Quarter: 2010Q4

REPORT INFORMATION
  Report Type: 
  Country: None (occurrence: None)
  Receive Date: 20101214
  Receipt Date: 20101206
  Transmission Date: 20110411
  Serious: Yes (Hospitalization, Other)
  Sender: FDA-Public Use
  Company Number: BR-ABBOTT-09P-020-0592842-00

PATIENT
  Sex: Male
  Weight: 95 kg

DRUGS (4)
  1. HUMIRA [Suspect]
     Indication: RHEUMATOID ARTHRITIS
     Route: 058
     Dates: start: 20080101
  2. HUMIRA [Suspect]
     Route: 058
     Dates: start: 20090904
  3. PREDSIM [Concomitant]
     Indication: RHEUMATOID ARTHRITIS
     Route: 048
  4. DIACEREIN [Concomitant]
     Indication: RHEUMATOID ARTHRITIS
     Route: 048

REACTIONS (17)
  - ARTHRITIS BACTERIAL [None]
  - ARTHROPATHY [None]
  - BACK PAIN [None]
  - BACTERIAL INFECTION [None]
  - BONE EROSION [None]
  - BURSITIS [None]
  - DEVICE MATERIAL ISSUE [None]
  - ERYTHEMA [None]
  - IMPLANT SITE PAIN [None]
  - MOBILITY DECREASED [None]
  - NODULE [None]
  - OEDEMA PERIPHERAL [None]
  - PAIN IN EXTREMITY [None]
  - RASH MACULAR [None]
  - SKIN DISCOLOURATION [None]
  - WALKING AID USER [None]
  - WEIGHT DECREASED [None]
